FAERS Safety Report 24463996 (Version 1)
Quarter: 2024Q4

REPORT INFORMATION
  Report Type: Report from Study
  Country: US (occurrence: US)
  Receive Date: 20241018
  Receipt Date: 20241018
  Transmission Date: 20250115
  Serious: No
  Sender: ROCHE
  Company Number: US-ROCHE-3495035

PATIENT
  Age: 58 Year
  Sex: Female
  Weight: 84.82 kg

DRUGS (8)
  1. XOLAIR [Suspect]
     Active Substance: OMALIZUMAB
     Indication: Idiopathic urticaria
     Dosage: 1 INJECTION EVERY 2 WEEKS IN THE UPPER ARM
     Route: 058
     Dates: end: 202310
  2. XOLAIR [Suspect]
     Active Substance: OMALIZUMAB
     Dosage: 2 INJECTIONS TOGETHER FOR FIRST DOSE ;ONGOING: NO
     Route: 058
     Dates: start: 202307
  3. LIOTHYRONINE [Concomitant]
     Active Substance: LIOTHYRONINE
     Indication: Hypothyroidism
     Route: 048
  4. CYCLOSPORINE [Concomitant]
     Active Substance: CYCLOSPORINE
     Indication: Idiopathic urticaria
     Route: 048
     Dates: start: 202312
  5. CYCLOSPORINE [Concomitant]
     Active Substance: CYCLOSPORINE
     Route: 048
     Dates: start: 202307, end: 202312
  6. DESLORATADINE [Concomitant]
     Active Substance: DESLORATADINE
     Indication: Idiopathic urticaria
     Dosage: 2 TABLETS IN THE MORNING
     Route: 048
     Dates: start: 202307
  7. XYZAL [Concomitant]
     Active Substance: LEVOCETIRIZINE DIHYDROCHLORIDE
     Indication: Idiopathic urticaria
     Route: 048
     Dates: start: 202307
  8. SERTRALINE [Concomitant]
     Active Substance: SERTRALINE HYDROCHLORIDE
     Indication: Anxiety
     Route: 048

REACTIONS (3)
  - Urticaria [Recovered/Resolved]
  - Swelling [Recovered/Resolved]
  - Off label use [Recovered/Resolved]
